FAERS Safety Report 6728033-0 (Version None)
Quarter: 2010Q2

REPORT INFORMATION
  Report Type: 
  Country: None (occurrence: None)
  Receive Date: 20100517
  Receipt Date: 20100416
  Transmission Date: 20101027
  Serious: Yes (Death, Other)
  Sender: FDA-Public Use
  Company Number: US-BAXTER-2009BH019530

PATIENT
  Age: 57 Year
  Sex: Male
  Weight: 66 kg

DRUGS (27)
  1. HEPARIN SODIUM INJECTION [Suspect]
     Indication: CENTRAL VENOUS CATHETERISATION
     Route: 065
     Dates: start: 20071001, end: 20071201
  2. HEPARIN SODIUM INJECTION [Suspect]
     Indication: DRUG USE FOR UNKNOWN INDICATION
     Route: 065
     Dates: start: 20071001, end: 20071201
  3. HEPARIN SODIUM INJECTION [Suspect]
     Route: 042
     Dates: start: 20070108, end: 20071201
  4. HEPARIN SODIUM INJECTION [Suspect]
     Route: 042
     Dates: start: 20070108, end: 20071201
  5. AMIODARONE [Concomitant]
     Indication: DRUG USE FOR UNKNOWN INDICATION
     Route: 048
  6. ASPIRIN [Concomitant]
     Indication: DRUG USE FOR UNKNOWN INDICATION
     Route: 048
  7. DIGOXIN [Concomitant]
     Indication: DRUG USE FOR UNKNOWN INDICATION
     Route: 048
  8. HYDRALAZINE HCL [Concomitant]
     Indication: DRUG USE FOR UNKNOWN INDICATION
     Route: 048
  9. ISOSORBIDE DINITRATE [Concomitant]
     Indication: DRUG USE FOR UNKNOWN INDICATION
     Route: 048
  10. SIMVASTATIN [Concomitant]
     Indication: DRUG USE FOR UNKNOWN INDICATION
     Route: 048
  11. WARFARIN [Concomitant]
     Indication: DRUG USE FOR UNKNOWN INDICATION
     Route: 048
  12. FUROSEMIDE [Concomitant]
     Indication: DRUG USE FOR UNKNOWN INDICATION
     Route: 048
  13. HYDROCODONE [Concomitant]
     Indication: DRUG USE FOR UNKNOWN INDICATION
     Route: 048
  14. MILRINONE [Concomitant]
     Indication: DRUG USE FOR UNKNOWN INDICATION
     Route: 042
  15. CARVEDILOL [Concomitant]
     Indication: DRUG USE FOR UNKNOWN INDICATION
     Route: 048
  16. DECADRON                                /NET/ [Concomitant]
     Indication: DRUG USE FOR UNKNOWN INDICATION
     Route: 048
  17. AMIODARONE [Concomitant]
     Route: 048
  18. ASPIRIN [Concomitant]
     Route: 048
  19. DIGOXIN [Concomitant]
     Route: 048
  20. FERROUS SULFATE TAB [Concomitant]
     Indication: DRUG USE FOR UNKNOWN INDICATION
     Route: 048
  21. ISOSORBIDE [Concomitant]
     Indication: DRUG USE FOR UNKNOWN INDICATION
     Route: 048
  22. POTASSIUM CHLORIDE [Concomitant]
     Indication: DRUG USE FOR UNKNOWN INDICATION
     Route: 048
  23. PRILOSEC [Concomitant]
     Indication: DRUG USE FOR UNKNOWN INDICATION
     Route: 048
  24. LASIX [Concomitant]
     Indication: DRUG USE FOR UNKNOWN INDICATION
     Route: 048
  25. HYDRALAZINE HCL [Concomitant]
     Route: 048
  26. CARVEDILOL [Concomitant]
     Route: 048
  27. NORMAL SALINE [Concomitant]
     Indication: INTRAVENOUS CATHETER MANAGEMENT
     Route: 042
     Dates: start: 20070101

REACTIONS (9)
  - ABDOMINAL PAIN [None]
  - ASTHENIA [None]
  - CARDIAC FAILURE CONGESTIVE [None]
  - ERYTHEMA [None]
  - HYPERHIDROSIS [None]
  - NAUSEA [None]
  - PHARYNGEAL OEDEMA [None]
  - RECTAL HAEMORRHAGE [None]
  - VOMITING [None]
